FAERS Safety Report 23732798 (Version 2)
Quarter: 2024Q2

REPORT INFORMATION
  Report Type: Spontaneous
  Country: RU (occurrence: None)
  Receive Date: 20240411
  Receipt Date: 20240416
  Transmission Date: 20240716
  Serious: Yes (Life-Threatening, Other)
  Sender: FDA-Public Use
  Company Number: 2024A086829

PATIENT
  Age: 64 Year
  Sex: Female

DRUGS (3)
  1. EVUSHELD [Suspect]
     Active Substance: CILGAVIMAB\TIXAGEVIMAB
     Indication: COVID-19
     Dosage: 150 + 150 MG, IV DROP, APPROXIMATELY ON 15-JUN-2022 FOR A
     Route: 030
  2. REMDESIVIR [Concomitant]
     Active Substance: REMDESIVIR
     Dosage: 200 MG ON THE 1ST DAY AND THEN 100 MG IV DRIP FOR 4 DAYS
  3. DALTEPARIN SODIUM [Concomitant]
     Active Substance: DALTEPARIN SODIUM
     Dosage: 2500 IU 2 TIMES A DAY SC.
     Route: 058

REACTIONS (8)
  - Respiratory failure [Unknown]
  - Incorrect route of product administration [Unknown]
  - Febrile neutropenia [Unknown]
  - Fibrosis [Unknown]
  - Oropharyngeal candidiasis [Unknown]
  - Autoimmune enteropathy [Unknown]
  - Urinary tract infection [Unknown]
  - COVID-19 [Unknown]
